FAERS Safety Report 5742600-2 (Version None)
Quarter: 2008Q2

REPORT INFORMATION
  Report Type: 
  Country: None (occurrence: None)
  Receive Date: 20080515
  Receipt Date: 20080505
  Transmission Date: 20081010
  Serious: Yes (Other)
  Sender: FDA-Public Use
  Company Number: 062-21880-08040547

PATIENT
  Age: 70 Year
  Sex: Male
  Weight: 104 kg

DRUGS (4)
  1. REVLIMID [Suspect]
     Indication: MYELODYSPLASTIC SYNDROME
     Dosage: 10 MG, DAILY, ORAL : 10 MG, DAILY, ORAL : 10 MG, DAILY, ORAL : 10 MG, DAILY, ORAL
     Route: 048
     Dates: start: 20070720, end: 20070810
  2. REVLIMID [Suspect]
     Indication: MYELODYSPLASTIC SYNDROME
     Dosage: 10 MG, DAILY, ORAL : 10 MG, DAILY, ORAL : 10 MG, DAILY, ORAL : 10 MG, DAILY, ORAL
     Route: 048
     Dates: start: 20070828, end: 20070911
  3. REVLIMID [Suspect]
     Indication: MYELODYSPLASTIC SYNDROME
     Dosage: 10 MG, DAILY, ORAL : 10 MG, DAILY, ORAL : 10 MG, DAILY, ORAL : 10 MG, DAILY, ORAL
     Route: 048
     Dates: start: 20070917, end: 20071007
  4. REVLIMID [Suspect]
     Indication: MYELODYSPLASTIC SYNDROME
     Dosage: 10 MG, DAILY, ORAL : 10 MG, DAILY, ORAL : 10 MG, DAILY, ORAL : 10 MG, DAILY, ORAL
     Route: 048
     Dates: end: 20080325

REACTIONS (2)
  - MACULAR DEGENERATION [None]
  - RETINAL HAEMORRHAGE [None]
